FAERS Safety Report 14385475 (Version 1)
Quarter: 2018Q1

REPORT INFORMATION
  Report Type: Spontaneous
  Country: US (occurrence: US)
  Receive Date: 20180115
  Receipt Date: 20180115
  Transmission Date: 20180509
  Serious: Yes (Other)
  Sender: FDA-Public Use
  Company Number: US-SA-2017SA067526

PATIENT
  Age: 46 Year
  Sex: Female
  Weight: 69.39 kg

DRUGS (11)
  1. ACTINOMYCIN D [Concomitant]
     Active Substance: DACTINOMYCIN
     Route: 065
  2. PARAPLATIN [Concomitant]
     Active Substance: CARBOPLATIN
     Route: 065
  3. TRASTUZUMAB. [Concomitant]
     Active Substance: TRASTUZUMAB
     Route: 065
  4. HYDROCODONE [Concomitant]
     Active Substance: HYDROCODONE
  5. HERCEPTIN [Concomitant]
     Active Substance: TRASTUZUMAB
  6. CELEBREX [Concomitant]
     Active Substance: CELECOXIB
  7. TAXOTERE [Suspect]
     Active Substance: DOCETAXEL
     Indication: BREAST CANCER FEMALE
     Dosage: AT 75MG/MZ
     Route: 051
     Dates: start: 20130821, end: 20130821
  8. NEULASTA [Concomitant]
     Active Substance: PEGFILGRASTIM
  9. TAXOTERE [Suspect]
     Active Substance: DOCETAXEL
     Indication: BREAST CANCER FEMALE
     Dosage: AT 75MG/MZ
     Route: 051
     Dates: start: 20130424, end: 20130424
  10. ZOFRAN [Concomitant]
     Active Substance: ONDANSETRON HYDROCHLORIDE
  11. CLARITIN [Concomitant]
     Active Substance: LORATADINE

REACTIONS (1)
  - Alopecia [Not Recovered/Not Resolved]

NARRATIVE: CASE EVENT DATE: 201305
